FAERS Safety Report 4664277-X (Version None)
Quarter: 2005Q2

REPORT INFORMATION
  Report Type: 
  Country: None (occurrence: None)
  Receive Date: 20050516
  Receipt Date: 20050505
  Transmission Date: 20051028
  Serious: Yes (Death)
  Sender: FDA-Public Use
  Company Number: 11040

PATIENT
  Age: 75 Year
  Sex: Female

DRUGS (14)
  1. DILTIAZEM HYDROCHLORIDE [Suspect]
     Dates: end: 20020301
  2. ASPIRIN [Suspect]
     Dates: start: 20020301
  3. NITROGLYCERIN [Suspect]
     Dosage: PO
     Route: 048
     Dates: start: 20020301
  4. MIDAZOLAM HCL [Suspect]
     Dosage: IV
     Route: 042
     Dates: start: 20020301, end: 20020301
  5. PROPOFOL [Suspect]
     Dosage: IV
     Route: 042
     Dates: start: 20020301, end: 20020301
  6. FENTANYL CITRATE [Suspect]
     Dosage: IV
     Route: 042
     Dates: start: 20020301, end: 20020301
  7. PANCURONIUM [Suspect]
     Dates: start: 20020301, end: 20020301
  8. ACETAMINOPHEN W/ CODEINE [Suspect]
     Dates: start: 20020301
  9. BUDESONIDE [Suspect]
     Dates: start: 20020301
  10. LANSOPRAZOLE [Suspect]
     Dates: start: 20020301
  11. LEFLUNOMIDE [Suspect]
     Dates: start: 20020301
  12. LISINOPRIL [Suspect]
     Dates: start: 20020301
  13. ATORVASTATIN CALCIUM [Suspect]
     Dates: start: 19990101
  14. QUININE SULFATE [Suspect]

REACTIONS (17)
  - ACTIVATED PARTIAL THROMBOPLASTIN TIME PROLONGED [None]
  - COAGULOPATHY [None]
  - GASTRIC ULCER [None]
  - GASTROINTESTINAL HAEMORRHAGE [None]
  - GENERAL PHYSICAL HEALTH DETERIORATION [None]
  - HAEMODIALYSIS [None]
  - HEPATIC CONGESTION [None]
  - HEPATIC FAILURE [None]
  - HEPATIC INFARCTION [None]
  - HEPATOCELLULAR DAMAGE [None]
  - HEPATORENAL SYNDROME [None]
  - HYPERAEMIA [None]
  - HYPOVOLAEMIA [None]
  - LABILE BLOOD PRESSURE [None]
  - POST PROCEDURAL HAEMORRHAGE [None]
  - PROTHROMBIN TIME PROLONGED [None]
  - RENAL FAILURE [None]
